FAERS Safety Report 22134659 (Version 1)
Quarter: 2023Q1

REPORT INFORMATION
  Report Type: Other
  Country: CN (occurrence: CN)
  Receive Date: 20230324
  Receipt Date: 20230324
  Transmission Date: 20230417
  Serious: Yes (Hospitalization, Other)
  Sender: FDA-Public Use
  Company Number: CN-ASTELLAS-2023US005971

PATIENT
  Age: 33 Year
  Sex: Female

DRUGS (4)
  1. XOSPATA [Suspect]
     Active Substance: GILTERITINIB
     Indication: Acute myeloid leukaemia
     Route: 048
     Dates: start: 20230202, end: 20230212
  2. XOSPATA [Suspect]
     Active Substance: GILTERITINIB
     Indication: Chemotherapy
  3. CYTARABINE [Suspect]
     Active Substance: CYTARABINE
     Indication: Acute myeloid leukaemia
     Dosage: 2000 MG, EVERY 12 HOURS
     Route: 041
     Dates: start: 20230129, end: 20230201
  4. CYTARABINE [Suspect]
     Active Substance: CYTARABINE
     Indication: Chemotherapy

REACTIONS (8)
  - Agranulocytosis [Unknown]
  - Decreased appetite [Unknown]
  - Nausea [Unknown]
  - Myelosuppression [Recovering/Resolving]
  - Febrile infection [Unknown]
  - Temperature intolerance [Unknown]
  - Asthenia [Unknown]
  - Gastrointestinal disorder [Unknown]

NARRATIVE: CASE EVENT DATE: 20230202
